FAERS Safety Report 6283940-0 (Version None)
Quarter: 2009Q3

REPORT INFORMATION
  Report Type: 
  Country: None (occurrence: None)
  Receive Date: 20090721
  Receipt Date: 20090721
  Transmission Date: 20100115
  Serious: Yes (Life-Threatening, Hospitalization)
  Sender: FDA-Public Use
  Company Number: None

PATIENT
  Age: 60 Year
  Sex: Male
  Weight: 83.9154 kg

DRUGS (5)
  1. MELOXICAM [Suspect]
     Indication: ARTHRITIS
     Dosage: 7.5MG 1 DAILY PO
     Route: 048
     Dates: start: 20090615, end: 20090713
  2. LAMOTRIGINE [Concomitant]
  3. GABAPENTIN [Concomitant]
  4. SERTRALINE HCL [Concomitant]
  5. OMEPRAZOLE [Concomitant]

REACTIONS (1)
  - CONVULSION [None]
